FAERS Safety Report 6380649-X (Version None)
Quarter: 2009Q3

REPORT INFORMATION
  Report Type: 
  Country: None (occurrence: None)
  Receive Date: 20090924
  Receipt Date: 20090915
  Transmission Date: 20100115
  Serious: No
  Sender: FDA-Public Use
  Company Number: 20097417

PATIENT
  Sex: Male

DRUGS (1)
  1. LIORESAL [Suspect]
     Indication: MUSCLE SPASTICITY
     Dosage: 720.4 MCG, DAILY, INTHRATHECAL
     Route: 039

REACTIONS (4)
  - DEVICE RELATED INFECTION [None]
  - HAEMATOMA [None]
  - OEDEMA [None]
  - SEROMA [None]
